FAERS Safety Report 9275333 (Version 1)
Quarter: 2013Q2

REPORT INFORMATION
  Report Type: Report from Study
  Country: CA (occurrence: CA)
  Receive Date: 20130507
  Receipt Date: 20130507
  Transmission Date: 20140414
  Serious: Yes (Death, Life-Threatening, Hospitalization)
  Sender: FDA-Public Use
  Company Number: CA-CELGENEUS-028-C4047-12121521

PATIENT
  Age: 55 Year
  Sex: Female
  Weight: 72.9 kg

DRUGS (6)
  1. CC-4047 [Suspect]
     Indication: PLASMA CELL MYELOMA
     Dosage: 4 MILLIGRAM
     Route: 065
     Dates: start: 20120531
  2. CC-4047 [Suspect]
     Dosage: 4 MILLIGRAM
     Route: 065
     Dates: start: 20121122, end: 20121218
  3. DEXAMETHASONE [Suspect]
     Indication: PLASMA CELL MYELOMA
     Dosage: 4 MILLIGRAM
     Route: 065
     Dates: start: 20120531
  4. DEXAMETHASONE [Suspect]
     Dosage: 4 MILLIGRAM
     Route: 065
     Dates: start: 20121122, end: 20121218
  5. BABY ASPIRIN [Concomitant]
     Indication: THROMBOSIS PROPHYLAXIS
     Dosage: 81 MILLIGRAM
     Route: 048
     Dates: start: 20120531
  6. HYDROMORPH CONTIN [Concomitant]
     Indication: PRODUCT USED FOR UNKNOWN INDICATION
     Route: 065

REACTIONS (3)
  - Sepsis [Fatal]
  - Plasmacytoma [Not Recovered/Not Resolved]
  - Hepatic mass [Not Recovered/Not Resolved]
